FAERS Safety Report 15747668 (Version 11)
Quarter: 2019Q4

REPORT INFORMATION
  Report Type: Report from Study
  Country: IT (occurrence: IT)
  Receive Date: 20181220
  Receipt Date: 20191016
  Transmission Date: 20200122
  Serious: Yes (Hospitalization)
  Sender: FDA-Public Use
  Company Number: IT-ROCHE-2227044

PATIENT
  Age: 24 Year
  Sex: Female
  Weight: 49 kg

DRUGS (8)
  1. PARACETAMOL [Concomitant]
     Active Substance: ACETAMINOPHEN
     Indication: PREMEDICATION
     Dosage: SAME DOSE ON 08/SEP/2017, 10/AUG/2018 AND 06/APR/2017
     Route: 048
     Dates: start: 20170321
  2. CHLORPHENAMINE MALEATE [Concomitant]
     Active Substance: CHLORPHENIRAMINE MALEATE
     Indication: PREMEDICATION
     Dosage: SAME DOSE ON 08/SEP/2017 AND 06/APR/2017
     Route: 042
     Dates: start: 20170321
  3. PANTOPRAZOLE [Concomitant]
     Active Substance: PANTOPRAZOLE
     Indication: PREMEDICATION
     Dosage: SAME DOSE ON 08/SEP/2017, 10/AUG/2018 AND 06/APR/2017
     Route: 042
     Dates: start: 20170321
  4. METHYLPREDNISOLONE. [Suspect]
     Active Substance: METHYLPREDNISOLONE
     Indication: PREMEDICATION
     Dosage: SAME DOSE ON 06/APR/2017, 08/SEP/2017, 16/FEB/2018
     Route: 042
     Dates: start: 20170321
  5. METHYLPREDNISOLONE. [Suspect]
     Active Substance: METHYLPREDNISOLONE
     Dosage: MOST RECENT DOSE PRIOR TO EVENT.
     Route: 042
     Dates: start: 20180810
  6. CETIRIZINE [Concomitant]
     Active Substance: CETIRIZINE HYDROCHLORIDE
     Indication: PREMEDICATION
     Route: 048
     Dates: start: 20180810, end: 20180810
  7. OCRELIZUMAB. [Suspect]
     Active Substance: OCRELIZUMAB
     Route: 042
  8. OCRELIZUMAB. [Suspect]
     Active Substance: OCRELIZUMAB
     Indication: RELAPSING-REMITTING MULTIPLE SCLEROSIS
     Dosage: TWO 300 MG IV INFUSIONS ON DAYS 1 AND 15 FOLLOWED BY ONE 600 MG IV INFUSIONS ADMINISTERED AT WEEKS 2
     Route: 042
     Dates: start: 20170321

REACTIONS (4)
  - Sepsis [Recovered/Resolved]
  - Oesophagitis bacterial [Recovered/Resolved]
  - Superinfection fungal [Recovered/Resolved]
  - Oral bacterial infection [Recovered/Resolved]

NARRATIVE: CASE EVENT DATE: 201808
